FAERS Safety Report 6676924-1 (Version None)
Quarter: 2010Q1

REPORT INFORMATION
  Report Type: 
  Country: None (occurrence: None)
  Receive Date: 20100331
  Receipt Date: 20090701
  Transmission Date: 20100710
  Serious: No
  Sender: FDA-Public Use
  Company Number: 2009-00525

PATIENT
  Age: 53 Year
  Sex: Male
  Weight: 95.2554 kg

DRUGS (2)
  1. ZICAM COLD REMEDY NASAL GEL [Suspect]
     Dosage: QID, 3-4 YEARS AGO
  2. ZICAM COLD REMEDY GEL SWABS [Suspect]
     Dosage: QID, 3-4 YEARS AGO

REACTIONS (2)
  - AGEUSIA [None]
  - ANOSMIA [None]
